FAERS Safety Report 17813208 (Version 1)
Quarter: 2020Q2

REPORT INFORMATION
  Report Type: Spontaneous
  Country: US (occurrence: US)
  Receive Date: 20200521
  Receipt Date: 20200521
  Transmission Date: 20200714
  Serious: Yes (Hospitalization, Other)
  Sender: FDA-Public Use
  Company Number: US-SERVIER-S20004375

PATIENT

DRUGS (1)
  1. ONCASPAR [Suspect]
     Active Substance: PEGASPARGASE
     Indication: ACUTE LYMPHOCYTIC LEUKAEMIA
     Dosage: UNSPECIFIED SCHEDULE
     Route: 042
     Dates: end: 20200428

REACTIONS (2)
  - Hypersensitivity [Recovered/Resolved]
  - Neutralising antibodies [Unknown]

NARRATIVE: CASE EVENT DATE: 20200428
